FAERS Safety Report 8958276 (Version 2)
Quarter: 2015Q1

REPORT INFORMATION
  Report Type: Report from Study
  Country: FR (occurrence: FR)
  Receive Date: 20121211
  Receipt Date: 20150211
  Transmission Date: 20150721
  Serious: Yes (Death, Hospitalization, Other)
  Sender: FDA-Public Use
  Company Number: FR-ROCHE-1165286

PATIENT
  Age: 75 Year
  Sex: Male

DRUGS (8)
  1. RITUXIMAB [Suspect]
     Active Substance: RITUXIMAB
     Route: 041
     Dates: start: 20080911
  2. CORTANCYL [Concomitant]
     Active Substance: PREDNISONE
     Route: 065
  3. PARACETAMOL [Concomitant]
     Active Substance: ACETAMINOPHEN
  4. RITUXIMAB [Suspect]
     Active Substance: RITUXIMAB
     Indication: RHEUMATOID ARTHRITIS
     Route: 041
     Dates: start: 20060116
  5. METHOTREXATE [Concomitant]
     Active Substance: METHOTREXATE
  6. METHYLPREDNISOLONE. [Concomitant]
     Active Substance: METHYLPREDNISOLONE
  7. RITUXIMAB [Suspect]
     Active Substance: RITUXIMAB
     Route: 041
     Dates: start: 20060213
  8. LEFLUNOMIDE. [Concomitant]
     Active Substance: LEFLUNOMIDE

REACTIONS (9)
  - Humerus fracture [Recovered/Resolved]
  - Bronchitis [Recovered/Resolved]
  - Pancytopenia [Unknown]
  - Musculoskeletal disorder [Unknown]
  - Cerebral atrophy [Unknown]
  - Staphylococcal sepsis [Unknown]
  - Infusion related reaction [Recovered/Resolved]
  - Ischaemic stroke [Fatal]
  - Disorientation [Unknown]

NARRATIVE: CASE EVENT DATE: 20060213
